FAERS Safety Report 19172777 (Version 1)
Quarter: 2021Q2

REPORT INFORMATION
  Report Type: Spontaneous
  Country: US (occurrence: US)
  Receive Date: 20210423
  Receipt Date: 20210423
  Transmission Date: 20210717
  Serious: No
  Sender: FDA-Public Use
  Company Number: US-BAYER-2021-127967

PATIENT
  Sex: Female

DRUGS (1)
  1. MIRALAX [Suspect]
     Active Substance: POLYETHYLENE GLYCOL 3350
     Indication: GASTROINTESTINAL DISORDER
     Dosage: 1 DF, QD
     Route: 065
     Dates: start: 20210419, end: 20210420

REACTIONS (2)
  - Inappropriate schedule of product administration [Unknown]
  - Faecal volume decreased [Unknown]

NARRATIVE: CASE EVENT DATE: 202104
